FAERS Safety Report 7625436-7 (Version None)
Quarter: 2011Q3

REPORT INFORMATION
  Report Type: 
  Country: None (occurrence: None)
  Receive Date: 20110716
  Receipt Date: 20110628
  Transmission Date: 20111222
  Serious: Yes (Hospitalization)
  Sender: FDA-Public Use
  Company Number: 2011MA008265

PATIENT
  Age: 24 Year
  Sex: Female

DRUGS (1)
  1. ALBUTEROL SULFATE [Suspect]
     Indication: ASTHMA
     Dosage: 5 MG;INH
     Route: 055

REACTIONS (9)
  - BUNDLE BRANCH BLOCK LEFT [None]
  - SINUS TACHYCARDIA [None]
  - CONDITION AGGRAVATED [None]
  - VENTRICULAR EXTRASYSTOLES [None]
  - COUGH [None]
  - TACHYPNOEA [None]
  - VENTRICULAR TACHYCARDIA [None]
  - ASTHMA [None]
  - OEDEMA PERIPHERAL [None]
